FAERS Safety Report 4779434-1 (Version None)
Quarter: 2005Q3

REPORT INFORMATION
  Report Type: 
  Country: None (occurrence: None)
  Receive Date: 20050923
  Receipt Date: 20050713
  Transmission Date: 20060218
  Serious: Yes (Hospitalization)
  Sender: FDA-Public Use
  Company Number: USA0507102701

PATIENT
  Age: 78 Year
  Sex: Female

DRUGS (5)
  1. HUMALOG [Suspect]
     Indication: DIABETES MELLITUS
     Dosage: 16 U DAY
  2. FORTEO [Suspect]
     Indication: OSTEOPOROSIS
     Dosage: 20 UG DAY
     Dates: start: 20040601
  3. LANTUS [Concomitant]
  4. FOSAMAX [Concomitant]
  5. ACTONEL [Concomitant]

REACTIONS (11)
  - ARTHRITIS [None]
  - BLOOD GLUCOSE INCREASED [None]
  - BONE DENSITY DECREASED [None]
  - BONE DISORDER [None]
  - DRUG INEFFECTIVE [None]
  - LUMBAR SPINAL STENOSIS [None]
  - OSTEOPOROSIS [None]
  - ROAD TRAFFIC ACCIDENT [None]
  - SPINAL FRACTURE [None]
  - STOMACH DISCOMFORT [None]
  - VISUAL DISTURBANCE [None]
